FAERS Safety Report 6853998-6 (Version None)
Quarter: 2010Q3

REPORT INFORMATION
  Report Type: 
  Country: None (occurrence: None)
  Receive Date: 20100717
  Receipt Date: 20071222
  Transmission Date: 20110219
  Serious: No
  Sender: FDA-Public Use
  Company Number: US-PFIZER INC-2007108755

PATIENT
  Sex: Male
  Weight: 84.09 kg

DRUGS (7)
  1. CHANTIX [Suspect]
     Indication: SMOKING CESSATION THERAPY
     Dates: start: 20071201, end: 20071201
  2. EFFEXOR XR [Concomitant]
  3. TRICOR [Concomitant]
  4. PRAVASTATIN [Concomitant]
  5. DIAZEPAM [Concomitant]
     Indication: RESTLESS LEGS SYNDROME
  6. ACIPHEX [Concomitant]
  7. XANAX [Concomitant]

REACTIONS (2)
  - ABNORMAL DREAMS [None]
  - NAUSEA [None]
